FAERS Safety Report 6887172-4 (Version None)
Quarter: 2010Q3

REPORT INFORMATION
  Report Type: 
  Country: None (occurrence: None)
  Receive Date: 20100730
  Receipt Date: 20100628
  Transmission Date: 20110219
  Serious: Yes (Hospitalization, Other)
  Sender: FDA-Public Use
  Company Number: CO-PFIZER INC-2010090292

PATIENT
  Sex: Male

DRUGS (4)
  1. SUTENT [Suspect]
     Indication: RENAL CANCER
     Dosage: 50 MG, 1X/DAY
     Route: 048
     Dates: start: 20100531, end: 20100611
  2. VERAPAMIL [Concomitant]
     Indication: HYPERTENSION
     Dosage: 160 MG, 3X/DAY
  3. CARDIO ASPIRINA [Concomitant]
     Indication: PROPHYLAXIS
     Dosage: 100 MG, 1X/DAY
  4. OMEPRAZOLE [Concomitant]
     Indication: PROPHYLAXIS
     Dosage: 1 DF, 1X/DAY

REACTIONS (4)
  - DIZZINESS [None]
  - EPISTAXIS [None]
  - HEPATITIS TOXIC [None]
  - RASH [None]
